FAERS Safety Report 6288626-4 (Version None)
Quarter: 2009Q3

REPORT INFORMATION
  Report Type: 
  Country: None (occurrence: None)
  Receive Date: 20090729
  Receipt Date: 20090720
  Transmission Date: 20100115
  Serious: Yes (Other)
  Sender: FDA-Public Use
  Company Number: GB-TEVA-203111ISR

PATIENT
  Age: 61 Year
  Weight: 80 kg

DRUGS (1)
  1. METFORMIN [Suspect]
     Indication: GLUCOSE TOLERANCE IMPAIRED
     Route: 048
     Dates: start: 20090401, end: 20090521

REACTIONS (1)
  - HEPATITIS ACUTE [None]
